FAERS Safety Report 16639176 (Version 2)
Quarter: 2019Q3

REPORT INFORMATION
  Report Type: Spontaneous
  Country: CH (occurrence: CH)
  Receive Date: 20190726
  Receipt Date: 20190905
  Transmission Date: 20191004
  Serious: Yes (Death, Hospitalization, Other)
  Sender: FDA-Public Use
  Company Number: CH-PFIZER INC-2019317201

PATIENT
  Age: 78 Year
  Sex: Female
  Weight: 63 kg

DRUGS (14)
  1. TOVIAZ [Suspect]
     Active Substance: FESOTERODINE FUMARATE
     Dosage: 8 MG, 1X/DAY
     Route: 048
     Dates: start: 201608
  2. TEMESTA [LORAZEPAM] [Suspect]
     Active Substance: LORAZEPAM
     Dosage: 2.5 MG, 2X/DAY (1-0-0-1)
     Route: 048
     Dates: start: 1989
  3. TEMESTA [LORAZEPAM] [Suspect]
     Active Substance: LORAZEPAM
     Dosage: 2.5 MG, 2X/DAY (1-0-0-1, ALREADY FOR 40 YEARS IN DIFFERENT DOSAGE)
     Route: 048
     Dates: start: 201612, end: 201712
  4. CIPRALEX [Suspect]
     Active Substance: ESCITALOPRAM OXALATE
     Dosage: 20 MG, DAILY (2-0-0-0)
     Route: 048
     Dates: start: 201608
  5. ATORVASTATIN PFIZER [Suspect]
     Active Substance: ATORVASTATIN
     Dosage: 40 MG, 1X/DAY (0-0-1-0)
     Dates: start: 20161228, end: 20190629
  6. DEXILANT [Suspect]
     Active Substance: DEXLANSOPRAZOLE
     Dosage: 60 MG, 1X/DAY
     Route: 048
     Dates: start: 201608
  7. QUETIAPIN SANDOZ [Suspect]
     Active Substance: QUETIAPINE
     Dosage: 12.5 MG, 2X/DAY
     Route: 048
     Dates: start: 20190401, end: 20190629
  8. PREGABALIN PFIZER [Suspect]
     Active Substance: PREGABALIN
     Dosage: 50 MG, 4X/DAY (1-1-1-1)
     Route: 048
     Dates: start: 201905
  9. TOVIAZ [Suspect]
     Active Substance: FESOTERODINE FUMARATE
     Dosage: 8 MG, 1X/DAY (0-0-1-0)
     Route: 048
     Dates: start: 201612
  10. BELOC ZOK [Suspect]
     Active Substance: METOPROLOL SUCCINATE
     Dosage: 50 MG, 1X/DAY
     Route: 048
     Dates: start: 201203
  11. ASPIRIN CARDIO [Suspect]
     Active Substance: ASPIRIN
     Dosage: 100 MG, 1X/DAY (1-0-0-0)
     Route: 048
     Dates: start: 201612
  12. BELOC ZOK [Suspect]
     Active Substance: METOPROLOL SUCCINATE
     Dosage: 50 MG, 1X/DAY (1-0-0-0)
     Route: 048
     Dates: start: 201608
  13. QUETIAPIN SANDOZ [Suspect]
     Active Substance: QUETIAPINE
     Dosage: 12.5 MG, 2X/DAY
     Route: 048
     Dates: start: 20190705, end: 20190711
  14. PANTOPRAZOLE SODIUM. [Suspect]
     Active Substance: PANTOPRAZOLE SODIUM
     Dosage: 40 MG, 1X/DAY (1-0-0-0)
     Route: 048
     Dates: start: 201203, end: 201608

REACTIONS (3)
  - Respiratory failure [Fatal]
  - Disease progression [Fatal]
  - Interstitial lung disease [Fatal]

NARRATIVE: CASE EVENT DATE: 201608
